FAERS Safety Report 10542337 (Version 3)
Quarter: 2014Q4

REPORT INFORMATION
  Report Type: Spontaneous
  Country: US (occurrence: US)
  Receive Date: 20141024
  Receipt Date: 20141204
  Transmission Date: 20150529
  Serious: Yes (Hospitalization)
  Sender: FDA-Public Use
  Company Number: US-ACTELION-A-NJ2014-103942

PATIENT
  Age: 46 Year
  Sex: Male
  Weight: 66.21 kg

DRUGS (3)
  1. SILDENAFIL. [Concomitant]
     Active Substance: SILDENAFIL
  2. REMODULIN [Suspect]
     Active Substance: TREPROSTINIL
     Indication: PULMONARY ARTERIAL HYPERTENSION
     Dosage: 39.3 NG/KG, PER MIN
     Route: 058
     Dates: start: 20130925
  3. OPSUMIT [Suspect]
     Active Substance: MACITENTAN
     Indication: PULMONARY ARTERIAL HYPERTENSION
     Dosage: 10 MG, QD
     Route: 048

REACTIONS (7)
  - Dyspnoea [Unknown]
  - Pulmonary hypertension [Unknown]
  - Hypoxia [Unknown]
  - Oxygen consumption increased [Unknown]
  - Pulmonary fibrosis [Unknown]
  - Pulmonary embolism [Unknown]
  - Cardiac failure congestive [Unknown]

NARRATIVE: CASE EVENT DATE: 20140811
